FAERS Safety Report 8764471 (Version 2)
Quarter: 2012Q4

REPORT INFORMATION
  Report Type: 
  Country: FR (occurrence: FR)
  Receive Date: 20120831
  Receipt Date: 20120927
  Transmission Date: 20130627
  Serious: Yes (Hospitalization)
  Sender: FDA-Public Use
  Company Number: FR-TEVA-356144USA

PATIENT
  Sex: Male

DRUGS (9)
  1. TREANDA [Suspect]
     Indication: CHRONIC LYMPHOCYTIC LEUKAEMIA
     Route: 041
     Dates: start: 20111122, end: 20120501
  2. MABTHERA [Suspect]
     Indication: NEOPLASM PROGRESSION
     Dosage: Unknown/D
     Route: 042
     Dates: start: 20111122, end: 20120501
  3. TEVAGRASTIM [Suspect]
     Route: 058
     Dates: start: 20120212
  4. TAREG [Concomitant]
     Dosage: 40 Milligram Daily;
     Dates: start: 20120207
  5. ESIDREX [Concomitant]
     Dosage: 12.5 Milligram Daily;
     Dates: start: 20120207
  6. NEURONTIN [Concomitant]
     Dosage: 300 Milligram Daily;
  7. XATRAL [Concomitant]
     Dosage: 100 Milligram Daily;
  8. ZELITREX [Concomitant]
     Dosage: 500 Milligram Daily;
  9. BACTRIM [Concomitant]
     Dosage: 400 Milligram Daily;

REACTIONS (3)
  - Neoplasm progression [Unknown]
  - Malignant melanoma [Unknown]
  - Squamous cell carcinoma [Unknown]
